FAERS Safety Report 6983510 (Version 3)
Quarter: 2013Q2

REPORT INFORMATION
  Report Type: Spontaneous
  Country: US (occurrence: US)
  Receive Date: 20090430
  Receipt Date: 20130603
  Transmission Date: 20140414
  Serious: Yes (Other)
  Sender: FDA-Public Use
  Company Number: US-ASTRAZENECA-2009UW03397

PATIENT
  Age: 90 Year
  Sex: Female

DRUGS (11)
  1. NEXIUM [Suspect]
     Indication: GASTROOESOPHAGEAL REFLUX DISEASE
     Route: 048
     Dates: start: 20080201
  2. SYMBICORT PMDI [Suspect]
     Indication: CHRONIC OBSTRUCTIVE PULMONARY DISEASE
     Route: 055
  3. TUMS [Concomitant]
  4. MYLANTA [Concomitant]
  5. PREVACID [Concomitant]
  6. ASPIRIN [Concomitant]
  7. HEMAX [Concomitant]
  8. LEVOBUNOLOL HCL [Concomitant]
  9. LUMIGAN [Concomitant]
  10. OXYCODONE HCL [Concomitant]
  11. TRUSOPT [Concomitant]

REACTIONS (17)
  - Chronic gastrointestinal bleeding [Unknown]
  - Cataract [Unknown]
  - Surgical failure [Unknown]
  - Dyspepsia [Unknown]
  - Aphagia [Unknown]
  - Gastrooesophageal reflux disease [Unknown]
  - Hiatus hernia [Unknown]
  - Oesophageal obstruction [Unknown]
  - Gastrointestinal arteriovenous malformation [Unknown]
  - Gastritis [Unknown]
  - Dysphagia [Unknown]
  - Aortic arteriosclerosis [Unknown]
  - Malaise [Unknown]
  - Abdominal pain upper [Unknown]
  - Nausea [Unknown]
  - Intentional drug misuse [Unknown]
  - Drug dose omission [Unknown]
